FAERS Safety Report 10682748 (Version 1)
Quarter: 2014Q4

REPORT INFORMATION
  Report Type: Spontaneous
  Country: US (occurrence: None)
  Receive Date: 20141229
  Receipt Date: 20141229
  Transmission Date: 20150529
  Serious: Yes (Life-Threatening, Hospitalization, Disabling, Other)
  Sender: FDA-Public Use
  Company Number: None

PATIENT
  Age: 19 Year
  Sex: Female
  Weight: 83.46 kg

DRUGS (2)
  1. APRI [Suspect]
     Active Substance: DESOGESTREL\ETHINYL ESTRADIOL
     Indication: CONTRACEPTION
     Route: 048
  2. APRI [Suspect]
     Active Substance: DESOGESTREL\ETHINYL ESTRADIOL
     Indication: MENSTRUAL DISORDER
     Route: 048

REACTIONS (3)
  - Cerebral thrombosis [None]
  - Cerebral haemorrhage [None]
  - Jugular vein thrombosis [None]

NARRATIVE: CASE EVENT DATE: 20141220
